FAERS Safety Report 18283756 (Version 1)
Quarter: 2020Q3

REPORT INFORMATION
  Report Type: Spontaneous
  Country: US (occurrence: US)
  Receive Date: 20200918
  Receipt Date: 20200918
  Transmission Date: 20201103
  Serious: No
  Sender: FDA-Public Use
  Company Number: US-BIOGEN-2020BI00925810

PATIENT
  Sex: Male
  Weight: 70.82 kg

DRUGS (2)
  1. EXTAVIA [Concomitant]
     Active Substance: INTERFERON BETA-1B
     Route: 065
  2. TECFIDERA [Suspect]
     Active Substance: DIMETHYL FUMARATE
     Indication: MULTIPLE SCLEROSIS
     Route: 048

REACTIONS (1)
  - COVID-19 [Unknown]
